FAERS Safety Report 7359550-0 (Version None)
Quarter: 2011Q1

REPORT INFORMATION
  Report Type: 
  Country: None (occurrence: None)
  Receive Date: 20110317
  Receipt Date: 20110303
  Transmission Date: 20110831
  Serious: Yes (Hospitalization, Other)
  Sender: FDA-Public Use
  Company Number: US-BAYER-2011-020294

PATIENT
  Sex: Male
  Weight: 107 kg

DRUGS (12)
  1. ATENOLOL [Concomitant]
  2. UNCODEABLE ^UNCLASSIFIABLE^ [Concomitant]
  3. B1 VITAMIN [Concomitant]
  4. ADVIL LIQUI-GELS [Concomitant]
  5. PROBIOTICA [Concomitant]
  6. IMODIUM MULTI-SYMPTOM RELIEF [Concomitant]
  7. UNCODEABLE ^UNKNOWN MANUFACTURER^ [Concomitant]
  8. VITAMIN B-12 [Concomitant]
  9. CITRACAL PETITES [Concomitant]
     Dosage: UNK
  10. ASPIRIN [Suspect]
     Dosage: 81 MG, QD
     Route: 048
  11. GABAPENTIN [Concomitant]
  12. VITAMIN B-12 [Concomitant]

REACTIONS (3)
  - DYSPNOEA [None]
  - CHEST PAIN [None]
  - PULMONARY THROMBOSIS [None]
